FAERS Safety Report 17100925 (Version 4)
Quarter: 2020Q1

REPORT INFORMATION
  Report Type: Spontaneous
  Country: US (occurrence: US)
  Receive Date: 20191202
  Receipt Date: 20200311
  Transmission Date: 20200409
  Serious: No
  Sender: FDA-Public Use
  Company Number: US-SA-2019SA330863

PATIENT
  Age: 60 Year
  Sex: Female

DRUGS (1)
  1. DUPIXENT [Suspect]
     Active Substance: DUPILUMAB
     Indication: PRODUCT USED FOR UNKNOWN INDICATION
     Dosage: 300 MG, QOW
     Route: 058
     Dates: start: 201911

REACTIONS (10)
  - Rebound eczema [Unknown]
  - Pruritus [Unknown]
  - Ocular hyperaemia [Unknown]
  - Blepharitis [Unknown]
  - Insomnia [Unknown]
  - Eye inflammation [Unknown]
  - Eye pruritus [Unknown]
  - Burning sensation [Unknown]
  - Eye swelling [Unknown]
  - Vision blurred [Unknown]

NARRATIVE: CASE EVENT DATE: 2019
